FAERS Safety Report 10769380 (Version 1)
Quarter: 2015Q1

REPORT INFORMATION
  Report Type: Spontaneous
  Country: DE (occurrence: None)
  Receive Date: 20150204
  Receipt Date: 20150204
  Transmission Date: 20150721
  Serious: Yes (Life-Threatening, Hospitalization, Disabling)
  Sender: FDA-Public Use
  Company Number: FK201500409

PATIENT
  Age: 77 Year
  Sex: Female

DRUGS (1)
  1. CEFUROXIM FRESENIUS (CEFUROXIME) (CEFUROXIME) [Suspect]
     Active Substance: CEFUROXIME
     Indication: SUPERINFECTION
     Dosage: 1.5 GM, 1 IN 1 D,  INTRAVENOUS (NOT OTHERWISE SPECIFIED)
     Route: 042

REACTIONS (1)
  - Anaphylactoid reaction [None]

NARRATIVE: CASE EVENT DATE: 20140908
